FAERS Safety Report 10520312 (Version 3)
Quarter: 2015Q1

REPORT INFORMATION
  Report Type: Spontaneous
  Country: US (occurrence: US)
  Receive Date: 20141015
  Receipt Date: 20150113
  Transmission Date: 20150720
  Serious: No
  Sender: FDA-Public Use
  Company Number: US-GLAXOSMITHKLINE-US2014GSK000247

PATIENT
  Sex: Female

DRUGS (2)
  1. NEBULIZER (NAME UNKNOWN) [Concomitant]
  2. ADVAIR DISKUS [Suspect]
     Active Substance: FLUTICASONE PROPIONATE\SALMETEROL XINAFOATE
     Indication: ASTHMA
     Dosage: UNK, U
     Dates: start: 2009

REACTIONS (2)
  - Drug dose omission [Unknown]
  - Adverse event [Unknown]
